FAERS Safety Report 18729877 (Version 2)
Quarter: 2021Q1

REPORT INFORMATION
  Report Type: Report from Study
  Country: IT (occurrence: IT)
  Receive Date: 20210112
  Receipt Date: 20210118
  Transmission Date: 20210419
  Serious: Yes (Other)
  Sender: FDA-Public Use
  Company Number: NVSC2021IT004076

PATIENT
  Age: 69 Year
  Sex: Male

DRUGS (1)
  1. BAF312 [Suspect]
     Active Substance: SIPONIMOD
     Indication: SECONDARY PROGRESSIVE MULTIPLE SCLEROSIS
     Dosage: 2 MG
     Route: 048
     Dates: start: 20190813, end: 20201214

REACTIONS (1)
  - Leydig cell tumour of the testis [Recovered/Resolved]

NARRATIVE: CASE EVENT DATE: 20201214
